FAERS Safety Report 5039239-3 (Version None)
Quarter: 2006Q2

REPORT INFORMATION
  Report Type: 
  Country: None (occurrence: None)
  Receive Date: 20060623
  Receipt Date: 20060613
  Transmission Date: 20061013
  Serious: Yes (Life-Threatening, Hospitalization, Other)
  Sender: FDA-Public Use
  Company Number: HQWYE218814JUN06

PATIENT
  Age: 21 Year
  Sex: Female

DRUGS (1)
  1. TYGACIL [Suspect]
     Dosage: INTRAVENOUS
     Route: 042

REACTIONS (1)
  - PANCREATITIS NECROTISING [None]
